FAERS Safety Report 21800469 (Version 1)
Quarter: 2022Q4

REPORT INFORMATION
  Report Type: Spontaneous
  Country: US (occurrence: None)
  Receive Date: 20221229
  Receipt Date: 20221229
  Transmission Date: 20230112
  Serious: Yes (Life-Threatening)
  Sender: FDA-Public Use
  Company Number: None

PATIENT
  Age: 53 Year
  Sex: Male
  Weight: 110.25 kg

DRUGS (2)
  1. ATORVASTATIN [Suspect]
     Active Substance: ATORVASTATIN
     Indication: Blood cholesterol
     Dosage: FREQUENCY : AT BEDTIME;?
     Route: 048
     Dates: start: 20220920, end: 20221218
  2. Bayer One A Day Mens 50+ [Concomitant]

REACTIONS (6)
  - Memory impairment [None]
  - Skin laceration [None]
  - Frustration tolerance decreased [None]
  - Mental disorder [None]
  - Suicidal ideation [None]
  - Fine motor skill dysfunction [None]

NARRATIVE: CASE EVENT DATE: 20221218
